FAERS Safety Report 9197074 (Version 1)
Quarter: 2013Q1

REPORT INFORMATION
  Report Type: Spontaneous
  Country: US (occurrence: US)
  Receive Date: 20130328
  Receipt Date: 20130328
  Transmission Date: 20140127
  Serious: No
  Sender: FDA-Public Use
  Company Number: US-BAYER-2013-038367

PATIENT
  Age: 77 Year
  Sex: Female
  Weight: 63.49 kg

DRUGS (3)
  1. ALEVE CAPLET/TABLET,MIDOL EXTENDED RELIEF CAPLET [Suspect]
     Indication: ARTHRITIS
     Dosage: 2 DF, BID
     Route: 048
     Dates: start: 201303
  2. VITAMIN D [Concomitant]
  3. LISINOPRIL [Concomitant]

REACTIONS (2)
  - Drug ineffective [None]
  - Overdose [None]
